FAERS Safety Report 7963645-8 (Version None)
Quarter: 2011Q4

REPORT INFORMATION
  Report Type: 
  Country: None (occurrence: None)
  Receive Date: 20111208
  Receipt Date: 20111110
  Transmission Date: 20120403
  Serious: No
  Sender: FDA-Public Use
  Company Number: US-BAYER-2011-109706

PATIENT
  Age: 35 Year
  Sex: Male
  Weight: 79 kg

DRUGS (2)
  1. AVANDIA [Concomitant]
     Indication: DIABETES MELLITUS
  2. ALEVE (CAPLET) [Suspect]
     Indication: TOOTHACHE
     Dosage: 2 DF, ONCE
     Route: 048
     Dates: start: 20111110, end: 20111110

REACTIONS (1)
  - TOOTHACHE [None]
